FAERS Safety Report 11628838 (Version 3)
Quarter: 2015Q4

REPORT INFORMATION
  Report Type: Spontaneous
  Country: IT (occurrence: IT)
  Receive Date: 20151014
  Receipt Date: 20151105
  Transmission Date: 20160304
  Serious: Yes (Other)
  Sender: FDA-Public Use
  Company Number: IT-ROCHE-1645649

PATIENT
  Age: 70 Year
  Sex: Male
  Weight: 85 kg

DRUGS (3)
  1. MABTHERA [Suspect]
     Active Substance: RITUXIMAB
     Indication: CHRONIC LYMPHOCYTIC LEUKAEMIA
     Dosage: 1 VIAL 500 MG 50 ML
     Route: 042
     Dates: start: 20130513, end: 20131002
  2. LEVACT (ITALY) [Suspect]
     Active Substance: BENDAMUSTINE HYDROCHLORIDE
     Indication: CHRONIC LYMPHOCYTIC LEUKAEMIA
     Dosage: 2.5 MG/ML 5 X 100 MG GLASS VIALS
     Route: 042
     Dates: start: 20130513, end: 20131002
  3. LAMIVUDINE. [Suspect]
     Active Substance: LAMIVUDINE
     Indication: ANTIVIRAL PROPHYLAXIS
     Route: 048
     Dates: start: 20130601, end: 20140331

REACTIONS (1)
  - Malignant melanoma [Recovered/Resolved with Sequelae]

NARRATIVE: CASE EVENT DATE: 20150701
